FAERS Safety Report 15621319 (Version 2)
Quarter: 2018Q4

REPORT INFORMATION
  Report Type: Spontaneous
  Country: FR (occurrence: FR)
  Receive Date: 20181112
  Receipt Date: 20181228
  Transmission Date: 20190205
  Serious: Yes (Other)
  Sender: FDA-Public Use
  Company Number: FR-BIOVITRUM-2018FR1341

PATIENT

DRUGS (2)
  1. KINERET [Suspect]
     Active Substance: ANAKINRA
     Route: 064
  2. COLCHICINE. [Concomitant]
     Active Substance: COLCHICINE

REACTIONS (1)
  - Fragile X syndrome [Not Recovered/Not Resolved]
